FAERS Safety Report 8577393-7 (Version None)
Quarter: 2012Q3

REPORT INFORMATION
  Report Type: 
  Country: None (occurrence: None)
  Receive Date: 20120807
  Receipt Date: 20120801
  Transmission Date: 20120928
  Serious: Yes (Death, Hospitalization, Other)
  Sender: FDA-Public Use
  Company Number: GR-BAYER-2012-079533

PATIENT
  Age: 22 Month
  Sex: Female

DRUGS (13)
  1. ASPIRIN [Suspect]
     Dosage: 5 MG/KG, DAILY
  2. METHYLPREDNISOLONE [Concomitant]
     Indication: KAWASAKI'S DISEASE
     Dosage: 30 MG/KG, PER 24 HOURS
  3. FUROSEMIDE [Concomitant]
     Indication: KAWASAKI'S DISEASE
  4. ABCIXIMAB [Concomitant]
     Indication: KAWASAKI'S DISEASE
     Dosage: UNK UNK, ONCE
  5. IBUPROFEN [Concomitant]
  6. RANITIDINE [Concomitant]
     Indication: KAWASAKI'S DISEASE
  7. ASPIRIN [Suspect]
     Dosage: 100 MG/KG, DAILY
  8. IMMUNE GLOBULIN NOS [Concomitant]
     Indication: KAWASAKI'S DISEASE
     Dosage: 2000 MG/KG, UNK
     Route: 042
  9. REMICADE [Concomitant]
     Dosage: 5 MG/KG, PER DOSE
  10. SPIRONOLACTONE [Concomitant]
     Indication: KAWASAKI'S DISEASE
  11. REMICADE [Concomitant]
     Indication: KAWASAKI'S DISEASE
     Dosage: 5 MG/KG, PER DOSE
  12. PROPRANOLOL [Concomitant]
     Indication: KAWASAKI'S DISEASE
  13. ASPIRIN [Suspect]
     Dosage: 5 MG/KG, DAILY

REACTIONS (3)
  - CONSTIPATION [None]
  - MYOCARDIAL ISCHAEMIA [None]
  - ABDOMINAL PAIN [None]
